FAERS Safety Report 7993475 (Version 3)
Quarter: 2012Q4

REPORT INFORMATION
  Report Type: Report from Study
  Country: SE (occurrence: SE)
  Receive Date: 20110616
  Receipt Date: 20121004
  Transmission Date: 20130627
  Serious: Yes (Hospitalization)
  Sender: FDA-Public Use
  Company Number: SE-SANOFI-AVENTIS-2011SA036408

PATIENT
  Age: 58 Year
  Sex: Male
  Weight: 68.7 kg

DRUGS (13)
  1. CABAZITAXEL [Suspect]
     Indication: PROSTATE CANCER METASTATIC
     Route: 042
     Dates: start: 20110302, end: 20110302
  2. CABAZITAXEL [Suspect]
     Indication: PROSTATE CANCER METASTATIC
     Route: 042
     Dates: start: 20110601, end: 20110601
  3. PREDNISOLONE [Suspect]
     Indication: PROSTATE CANCER METASTATIC
     Route: 048
  4. OMEPRAZOLE [Concomitant]
  5. PRIMPERAN [Concomitant]
  6. ONDANSETRON [Concomitant]
  7. SODIUM PICOSULFATE [Concomitant]
  8. SALURES [Concomitant]
  9. FILGRASTIM [Concomitant]
  10. KETOGAN [Concomitant]
  11. PAMOL [Concomitant]
  12. PROPAVAN [Concomitant]
  13. ESOMEPRAZOLE [Concomitant]
     Route: 048

REACTIONS (1)
  - Gastric ulcer [Recovered/Resolved]
